FAERS Safety Report 10566188 (Version 1)
Quarter: 2014Q4

REPORT INFORMATION
  Report Type: Report from Study
  Country: BR (occurrence: BR)
  Receive Date: 20141105
  Receipt Date: 20141105
  Transmission Date: 20150529
  Serious: Yes (Death, Hospitalization, Other)
  Sender: FDA-Public Use
  Company Number: PHHY2014BR144221

PATIENT
  Sex: Male
  Weight: 95 kg

DRUGS (2)
  1. EXELON [Suspect]
     Active Substance: RIVASTIGMINE TARTRATE
     Indication: DEMENTIA ALZHEIMER^S TYPE
     Dosage: 3 DF (3 CAPSULES), QD
     Route: 065
  2. VARICOSS [Concomitant]
     Indication: CARDIOVASCULAR DISORDER
     Dosage: 2 DF (2 TABLETS), QD
     Route: 065

REACTIONS (3)
  - Emphysema [Fatal]
  - Septic shock [Fatal]
  - Diabetes mellitus [Unknown]
